FAERS Safety Report 19025925 (Version 1)
Quarter: 2021Q1

REPORT INFORMATION
  Report Type: Spontaneous
  Country: US (occurrence: US)
  Receive Date: 20210317
  Receipt Date: 20210317
  Transmission Date: 20210420
  Serious: Yes (Hospitalization)
  Sender: FDA-Public Use
  Company Number: None

PATIENT
  Age: 67 Year
  Sex: Female

DRUGS (4)
  1. SOD CHL 7% NEB [Concomitant]
  2. LEVALBUTEROL. [Concomitant]
     Active Substance: LEVALBUTEROL
  3. PULMOZYME [Concomitant]
     Active Substance: DORNASE ALFA
  4. BETHKIS [Suspect]
     Active Substance: TOBRAMYCIN
     Indication: INFECTIVE PULMONARY EXACERBATION OF CYSTIC FIBROSIS
     Dosage: ?          OTHER DOSE:4ML (300MG);?
     Route: 055
     Dates: start: 20181229

REACTIONS (1)
  - Rib fracture [None]

NARRATIVE: CASE EVENT DATE: 20210315
